FAERS Safety Report 25774253 (Version 2)
Quarter: 2025Q4

REPORT INFORMATION
  Report Type: Spontaneous
  Country: US (occurrence: US)
  Receive Date: 20250908
  Receipt Date: 20251015
  Transmission Date: 20260117
  Serious: No
  Sender: BAYER HEALTHCARE PHARMACEUTICALS INC.
  Company Number: US-BAYER-2025A116691

PATIENT
  Age: 71 Year
  Sex: Female

DRUGS (6)
  1. GADAVIST [Suspect]
     Active Substance: GADOBUTROL
     Indication: Magnetic resonance imaging
     Dosage: UNK UNK, ONCE
     Dates: start: 20250728, end: 20250728
  2. GADAVIST [Suspect]
     Active Substance: GADOBUTROL
     Indication: Magnetic resonance imaging breast
     Dosage: UNK UNK, ONCE
     Dates: start: 20250825, end: 20250825
  3. TELMISARTAN [Concomitant]
     Active Substance: TELMISARTAN
  4. IBANDRONATE SODIUM [Concomitant]
     Active Substance: IBANDRONATE SODIUM
  5. ROSUVASTATIN [Concomitant]
     Active Substance: ROSUVASTATIN
  6. LIDOCAINE [Concomitant]
     Active Substance: LIDOCAINE
     Indication: Local anaesthesia

REACTIONS (5)
  - Back pain [Recovered/Resolved]
  - Mobility decreased [None]
  - Dyspnoea [None]
  - Blood urine present [Recovered/Resolved]
  - Renal pain [None]

NARRATIVE: CASE EVENT DATE: 20250831
